FAERS Safety Report 4673337-9 (Version None)
Quarter: 2005Q2

REPORT INFORMATION
  Report Type: 
  Country: None (occurrence: None)
  Receive Date: 20050523
  Receipt Date: 20050517
  Transmission Date: 20051028
  Serious: Yes (Other)
  Sender: FDA-Public Use
  Company Number: MED000167

PATIENT
  Age: 15 Year
  Sex: Female

DRUGS (1)
  1. LACTATED RINGER'S [Suspect]
     Indication: DEHYDRATION
     Dosage: 500 ML; UNK; INTRAVENOUS
     Route: 042
     Dates: start: 20050426, end: 20050426

REACTIONS (4)
  - DRUG EXPOSURE DURING PREGNANCY [None]
  - INFUSION RELATED REACTION [None]
  - PRURITUS [None]
  - RASH [None]
